FAERS Safety Report 17030782 (Version 1)
Quarter: 2019Q4

REPORT INFORMATION
  Report Type: Spontaneous
  Country: CA (occurrence: CA)
  Receive Date: 20191114
  Receipt Date: 20191114
  Transmission Date: 20200122
  Serious: Yes (Disabling)
  Sender: FDA-Public Use
  Company Number: CA-BAYER-2019-199644

PATIENT
  Age: 19 Year
  Sex: Female
  Weight: 68 kg

DRUGS (1)
  1. JAYDESS [Suspect]
     Active Substance: LEVONORGESTREL
     Indication: CONTRACEPTION
     Dosage: 14 MCG/24HR, CONT
     Route: 015

REACTIONS (11)
  - Apathy [Unknown]
  - Exercise lack of [Unknown]
  - Insomnia [Unknown]
  - Acne [Unknown]
  - Anxiety [Unknown]
  - Confusional state [Unknown]
  - Irritability [Unknown]
  - Depression [Unknown]
  - Fatigue [Unknown]
  - Disturbance in attention [Unknown]
  - Social avoidant behaviour [Unknown]
